FAERS Safety Report 9850031 (Version 1)
Quarter: 2013Q4

REPORT INFORMATION
  Report Type: Spontaneous
  Country: US (occurrence: None)
  Receive Date: 20131226
  Receipt Date: 20131226
  Transmission Date: 20140711
  Serious: Yes (Other)
  Sender: FDA-Public Use
  Company Number: PHEH2012US014968

PATIENT
  Age: 18 Year
  Sex: Male
  Weight: 19.9 kg

DRUGS (5)
  1. AFINITOR [Suspect]
     Indication: ANGIOMYOLIPOMA
     Route: 048
     Dates: start: 20120420, end: 20120506
  2. TOPAMAX (TOPIRAMATE) [Concomitant]
  3. KLONOPIN (CLONAZEPAM) [Concomitant]
  4. KLONOPIN (CLONAZEPAM) [Concomitant]
  5. KEPPRA (LEVETIRACETAM) [Concomitant]

REACTIONS (2)
  - Lung infection [None]
  - Drug level decreased [None]
